FAERS Safety Report 11410707 (Version 5)
Quarter: 2015Q4

REPORT INFORMATION
  Report Type: Report from Study
  Country: LU (occurrence: LU)
  Receive Date: 20150824
  Receipt Date: 20151130
  Transmission Date: 20160304
  Serious: Yes (Death, Life-Threatening, Hospitalization)
  Sender: FDA-Public Use
  Company Number: LU-BAYER-2015-395080

PATIENT
  Age: 64 Year
  Sex: Female
  Weight: 52 kg

DRUGS (2)
  1. REGORAFENIB [Suspect]
     Active Substance: REGORAFENIB
     Indication: COLON CANCER METASTATIC
     Dosage: 160 MG (4 TABLETS X 40 MG)
     Route: 048
     Dates: start: 20150629, end: 20150813
  2. FORTECORTIN [Concomitant]
     Active Substance: DEXAMETHASONE
     Indication: CACHEXIA
     Dosage: TOTAL DAILY DOSE 12 MG
     Dates: start: 20150626, end: 20150706

REACTIONS (4)
  - Syncope [Recovering/Resolving]
  - Depression [Recovering/Resolving]
  - Intestinal perforation [Not Recovered/Not Resolved]
  - Colorectal cancer metastatic [Fatal]

NARRATIVE: CASE EVENT DATE: 20150803
